FAERS Safety Report 6283428-7 (Version None)
Quarter: 2009Q3

REPORT INFORMATION
  Report Type: 
  Country: None (occurrence: None)
  Receive Date: 20090724
  Receipt Date: 20090403
  Transmission Date: 20100115
  Serious: No
  Sender: FDA-Public Use
  Company Number: US-ALEXION-A200900249

PATIENT
  Sex: Female
  Weight: 57 kg

DRUGS (9)
  1. SOLIRIS [Suspect]
     Indication: PAROXYSMAL NOCTURNAL HAEMOGLOBINURIA
     Dosage: 600 MG, QWK X4
     Route: 042
     Dates: start: 20080506, end: 20080526
  2. SOLIRIS [Suspect]
     Dosage: 900 MG, Q2WK
     Route: 042
     Dates: start: 20080603
  3. PRILOSEC [Concomitant]
     Indication: GASTROINTESTINAL DISORDER
     Dosage: 20 MG, QD
     Route: 048
     Dates: end: 20081222
  4. IRON [Concomitant]
     Dosage: 325 MG, QD
     Route: 048
  5. FOLIC ACID [Concomitant]
     Indication: PAROXYSMAL NOCTURNAL HAEMOGLOBINURIA
     Dosage: 2 MG, QD
     Route: 048
  6. ASPIRIN [Concomitant]
     Dosage: 81 MG, QD
     Route: 048
  7. MULTIVITAMIN                       /00831701/ [Concomitant]
     Dosage: UNK,  QD
     Route: 048
  8. B COMPLEX                          /00212701/ [Concomitant]
     Dosage: UNK, QD
     Route: 048
  9. NASONEX [Concomitant]
     Dosage: UNK
     Route: 045

REACTIONS (1)
  - MEAN CELL VOLUME ABNORMAL [None]
